FAERS Safety Report 7387073-1 (Version None)
Quarter: 2011Q1

REPORT INFORMATION
  Report Type: 
  Country: None (occurrence: None)
  Receive Date: 20110331
  Receipt Date: 20110322
  Transmission Date: 20110831
  Serious: Yes (Hospitalization, Disabling)
  Sender: FDA-Public Use
  Company Number: US-MERCK-0911USA00161

PATIENT
  Age: 60 Year
  Sex: Female
  Weight: 66 kg

DRUGS (4)
  1. FOSAMAX [Suspect]
     Indication: OSTEOPOROSIS
     Route: 048
     Dates: start: 19950901, end: 20080901
  2. FOSAMAX [Suspect]
     Route: 048
     Dates: start: 19991001, end: 20000901
  3. FOSAMAX [Suspect]
     Indication: OSTEOPENIA
     Route: 048
     Dates: start: 19950901, end: 20080901
  4. FOSAMAX [Suspect]
     Route: 048
     Dates: start: 19991001, end: 20000901

REACTIONS (45)
  - LABORATORY TEST ABNORMAL [None]
  - HIGH DENSITY LIPOPROTEIN DECREASED [None]
  - ELECTROCARDIOGRAM ABNORMAL [None]
  - MUSCULOSKELETAL PAIN [None]
  - MUSCLE SPASMS [None]
  - LOW TURNOVER OSTEOPATHY [None]
  - HYPERLIPIDAEMIA [None]
  - ALOPECIA [None]
  - DYSPNOEA EXERTIONAL [None]
  - BURSITIS [None]
  - OEDEMA PERIPHERAL [None]
  - GASTROOESOPHAGEAL REFLUX DISEASE [None]
  - CERVICAL SPINAL STENOSIS [None]
  - CHEST PAIN [None]
  - OSTEOARTHRITIS [None]
  - ANAEMIA [None]
  - SPONDYLOLISTHESIS [None]
  - INTERVERTEBRAL DISC DEGENERATION [None]
  - SPINAL OSTEOARTHRITIS [None]
  - HYPOAESTHESIA [None]
  - FALL [None]
  - ARTHRITIS [None]
  - DIVERTICULUM [None]
  - BACK PAIN [None]
  - IRRITABLE BOWEL SYNDROME [None]
  - FEMUR FRACTURE [None]
  - HEPATIC ENZYME INCREASED [None]
  - HAEMORRHOIDS [None]
  - MUSCULAR WEAKNESS [None]
  - ASTHENIA [None]
  - CONSTIPATION [None]
  - OSTEOPOROSIS [None]
  - PAIN IN EXTREMITY [None]
  - GASTRITIS [None]
  - INSOMNIA [None]
  - GROIN PAIN [None]
  - DYSPEPSIA [None]
  - RECTAL POLYP [None]
  - RADICULITIS LUMBOSACRAL [None]
  - LUMBAR SPINAL STENOSIS [None]
  - IMPAIRED HEALING [None]
  - ANGLE CLOSURE GLAUCOMA [None]
  - PARONYCHIA [None]
  - BLOOD CHOLESTEROL INCREASED [None]
  - BALANCE DISORDER [None]
